FAERS Safety Report 10128744 (Version 1)
Quarter: 2014Q2

REPORT INFORMATION
  Report Type: Spontaneous
  Country: US (occurrence: None)
  Receive Date: 20140424
  Receipt Date: 20140424
  Transmission Date: 20141212
  Serious: Yes (Other)
  Sender: FDA-Public Use
  Company Number: None

PATIENT
  Age: 50 Year
  Sex: Female

DRUGS (10)
  1. ENBREL [Suspect]
     Indication: RHEUMATOID ARTHRITIS
     Route: 058
     Dates: start: 20080902, end: 20140422
  2. ARANESP [Concomitant]
  3. DIGITEK [Concomitant]
  4. DIGOXIN [Concomitant]
  5. FLUTICASONE [Concomitant]
  6. HYDROCHLOROTHIAZIDE [Concomitant]
  7. LUPRON [Concomitant]
  8. PHOSLO [Concomitant]
  9. PREDNISONE [Concomitant]
  10. RENAL CAPS SOFTGEL [Concomitant]

REACTIONS (1)
  - Squamous cell carcinoma of skin [None]
